FAERS Safety Report 5657074-X (Version None)
Quarter: 2008Q1

REPORT INFORMATION
  Report Type: 
  Country: None (occurrence: None)
  Receive Date: 20080310
  Receipt Date: 20080213
  Transmission Date: 20080703
  Serious: Yes (Hospitalization, Other)
  Sender: FDA-Public Use
  Company Number: DE-BAYER-200812516GPV

PATIENT
  Age: 62 Year
  Sex: Female
  Weight: 69 kg

DRUGS (3)
  1. MABCAMPATH2 [Suspect]
     Indication: B-CELL SMALL LYMPHOCYTIC LYMPHOMA
     Route: 058
     Dates: start: 20060801, end: 20070101
  2. FLUDARA [Suspect]
     Indication: B-CELL SMALL LYMPHOCYTIC LYMPHOMA
     Route: 042
     Dates: start: 20060801, end: 20070101
  3. CYCLOPHOSPHAMIDE [Suspect]
     Indication: B-CELL SMALL LYMPHOCYTIC LYMPHOMA
     Route: 042
     Dates: start: 20060801, end: 20070101

REACTIONS (10)
  - ANAEMIA HAEMOLYTIC AUTOIMMUNE [None]
  - APHTHOUS STOMATITIS [None]
  - GENERAL PHYSICAL HEALTH DETERIORATION [None]
  - IMMUNODEFICIENCY [None]
  - LEUKOPENIA [None]
  - OEDEMA PERIPHERAL [None]
  - PAIN [None]
  - PNEUMONIA PRIMARY ATYPICAL [None]
  - RELAPSING FEVER [None]
  - SWELLING FACE [None]
